FAERS Safety Report 4878734-4 (Version None)
Quarter: 2006Q1

REPORT INFORMATION
  Report Type: 
  Country: None (occurrence: None)
  Receive Date: 20060112
  Receipt Date: 20060103
  Transmission Date: 20060701
  Serious: Yes (Hospitalization)
  Sender: FDA-Public Use
  Company Number: 2006GB00007

PATIENT
  Age: 57 Year
  Sex: Female

DRUGS (2)
  1. LIDOCAINE [Suspect]
     Indication: PAIN MANAGEMENT
     Route: 008
     Dates: start: 20051114, end: 20051114
  2. KENALOG [Concomitant]
     Route: 065
     Dates: start: 20051114

REACTIONS (2)
  - MONOPLEGIA [None]
  - MUSCULAR WEAKNESS [None]
